FAERS Safety Report 5635918-5 (Version None)
Quarter: 2008Q1

REPORT INFORMATION
  Report Type: 
  Country: None (occurrence: None)
  Receive Date: 20080219
  Receipt Date: 20080205
  Transmission Date: 20080703
  Serious: Yes (Hospitalization)
  Sender: FDA-Public Use
  Company Number: 18365

PATIENT
  Age: 43 Year
  Sex: Male

DRUGS (8)
  1. VINCRISTINE [Suspect]
     Dosage: 2 MG FREQ
     Dates: start: 20060614
  2. KEPIVANCE [Suspect]
     Dosage: 11.5 MG QD IV
     Route: 042
     Dates: start: 20060613
  3. BETA BLOCKING AGENTS [Suspect]
     Dates: start: 20060801
  4. IFOSFAMIDE [Concomitant]
  5. ETOPOSIDE [Concomitant]
  6. CYTARABINE [Concomitant]
  7. RITUXIMAB [Concomitant]
  8. METHOTREXATE [Concomitant]

REACTIONS (15)
  - BLISTER [None]
  - DRUG INTERACTION [None]
  - DYSAESTHESIA [None]
  - DYSGEUSIA [None]
  - ERECTILE DYSFUNCTION [None]
  - ERYTHEMA [None]
  - FATIGUE [None]
  - GAIT DISTURBANCE [None]
  - HYPERTENSION [None]
  - INTERTRIGO [None]
  - PAIN [None]
  - POOR PERIPHERAL CIRCULATION [None]
  - RASH [None]
  - SKIN TOXICITY [None]
  - TONGUE DISORDER [None]
